FAERS Safety Report 6892711-3 (Version None)
Quarter: 2010Q3

REPORT INFORMATION
  Report Type: 
  Country: None (occurrence: None)
  Receive Date: 20100731
  Receipt Date: 20080813
  Transmission Date: 20110219
  Serious: No
  Sender: FDA-Public Use
  Company Number: US-PFIZER INC-2008061967

PATIENT
  Sex: Male
  Weight: 71.67 kg

DRUGS (8)
  1. AMLODIPINE [Suspect]
     Indication: HYPERTENSION
     Route: 048
     Dates: start: 20080601
  2. DOXAZOSIN [Suspect]
     Indication: BENIGN PROSTATIC HYPERPLASIA
  3. DOXAZOSIN [Suspect]
     Indication: HYPERTENSION
  4. ATENOLOL [Suspect]
     Indication: HYPERTENSION
  5. BENAZEPRIL HYDROCHLORIDE [Concomitant]
  6. TERAZOSIN HCL [Concomitant]
     Indication: PROSTATIC DISORDER
  7. DYAZIDE [Concomitant]
  8. COZAAR [Concomitant]

REACTIONS (2)
  - DRUG INEFFECTIVE [None]
  - FATIGUE [None]
